FAERS Safety Report 9479289 (Version 1)
Quarter: 2013Q3

REPORT INFORMATION
  Report Type: Spontaneous
  Country: IN (occurrence: IN)
  Receive Date: 20130827
  Receipt Date: 20130827
  Transmission Date: 20140515
  Serious: Yes (Other)
  Sender: FDA-Public Use
  Company Number: IN-ABBOTT-13P-078-1138855-00

PATIENT
  Sex: Female

DRUGS (1)
  1. LEVOTHYROXINE [Suspect]
     Indication: ANTI-THYROID ANTIBODY POSITIVE

REACTIONS (1)
  - Abortion spontaneous [Unknown]
